FAERS Safety Report 7607862-5 (Version None)
Quarter: 2011Q3

REPORT INFORMATION
  Report Type: 
  Country: None (occurrence: None)
  Receive Date: 20110714
  Receipt Date: 20110706
  Transmission Date: 20111222
  Serious: Yes (Hospitalization)
  Sender: FDA-Public Use
  Company Number: US-BIOGENIDEC-2011BI024560

PATIENT
  Age: 62 Year
  Sex: Female

DRUGS (1)
  1. AVONEX [Suspect]
     Indication: MULTIPLE SCLEROSIS
     Route: 030
     Dates: start: 20101101

REACTIONS (15)
  - ANXIETY [None]
  - GASTRIC INFECTION [None]
  - VOMITING [None]
  - CHEST PAIN [None]
  - BONE PAIN [None]
  - TREMOR [None]
  - ASTHMA [None]
  - INSOMNIA [None]
  - ASTHENIA [None]
  - FEELING HOT [None]
  - GASTROOESOPHAGEAL REFLUX DISEASE [None]
  - FEELING COLD [None]
  - PAIN [None]
  - HEADACHE [None]
  - APHAGIA [None]
